FAERS Safety Report 7736854-0 (Version None)
Quarter: 2011Q3

REPORT INFORMATION
  Report Type: 
  Country: None (occurrence: None)
  Receive Date: 20110908
  Receipt Date: 20110830
  Transmission Date: 20111222
  Serious: Yes (Hospitalization)
  Sender: FDA-Public Use
  Company Number: PHHO2011CZ14745

PATIENT
  Sex: Male
  Weight: 73 kg

DRUGS (6)
  1. LOKREN [Concomitant]
     Indication: HYPERTENSION
     Dosage: 5 MG, UNK
     Route: 048
  2. RAMIPRIL [Concomitant]
     Indication: DIABETES MELLITUS
     Dosage: 3X1 TABLET
     Route: 048
     Dates: start: 20110729
  3. PLACEBO [Suspect]
     Indication: CARCINOID TUMOUR
     Dosage: 5 MG, QD
     Route: 048
     Dates: start: 20080430
  4. PANCREOLAN FORTE [Concomitant]
     Indication: DYSPEPSIA
     Dosage: UNK
     Route: 048
  5. SANDOSTATIN LAR [Suspect]
     Indication: CARCINOID TUMOUR
     Dosage: 30 MG, UNK
     Route: 030
     Dates: start: 20080430
  6. SORBIFER DURULES [Concomitant]
     Indication: ANAEMIA
     Dosage: 1X1 TAB
     Route: 048
     Dates: start: 20110203

REACTIONS (1)
  - GANGRENE [None]
